FAERS Safety Report 5008980-0 (Version None)
Quarter: 2006Q2

REPORT INFORMATION
  Report Type: 
  Country: None (occurrence: None)
  Receive Date: 20060519
  Receipt Date: 20060512
  Transmission Date: 20061013
  Serious: Yes (Hospitalization)
  Sender: FDA-Public Use
  Company Number: HQWYE324712MAY06

PATIENT
  Age: 87 Year
  Sex: Male

DRUGS (5)
  1. CORDARONE [Suspect]
     Indication: ATRIAL FIBRILLATION
     Dosage: 200 MG 5X PER 1 WK,  ORAL
     Route: 048
     Dates: start: 20050815, end: 20060113
  2. LASIX [Concomitant]
  3. ALLOPURINOL [Concomitant]
  4. ADANCOR (NICORANDIL) [Concomitant]
  5. XATRAL (ALFUZOSIN) [Concomitant]

REACTIONS (9)
  - ATRIAL FIBRILLATION [None]
  - BRADYCARDIA [None]
  - CARDIAC FAILURE [None]
  - DISEASE RECURRENCE [None]
  - DRUG EFFECT DECREASED [None]
  - DYSPNOEA [None]
  - LOSS OF CONSCIOUSNESS [None]
  - MALAISE [None]
  - OEDEMA PERIPHERAL [None]
